FAERS Safety Report 9382703 (Version 1)
Quarter: 2013Q3

REPORT INFORMATION
  Report Type: Spontaneous
  Country: US (occurrence: US)
  Receive Date: 20130703
  Receipt Date: 20130703
  Transmission Date: 20140515
  Serious: Yes (Other)
  Sender: FDA-Public Use
  Company Number: CHPA2013US010408

PATIENT
  Age: 44 Year
  Sex: Male

DRUGS (2)
  1. EXCEDRIN MIGRAINE [Suspect]
     Indication: MIGRAINE
     Dosage: 1 DF, PRN
     Route: 048
  2. MORPHINE [Suspect]
     Indication: ABDOMINAL DISCOMFORT
     Dosage: UNK, UNK
     Route: 040
     Dates: start: 20130104, end: 20130105

REACTIONS (7)
  - Intestinal ulcer [Recovered/Resolved]
  - Vomiting [Recovered/Resolved]
  - Abdominal pain upper [Recovered/Resolved]
  - Malaise [Recovered/Resolved]
  - Feeling abnormal [Recovered/Resolved]
  - Migraine [Not Recovered/Not Resolved]
  - Underdose [Unknown]
